FAERS Safety Report 5047133-7 (Version None)
Quarter: 2006Q3

REPORT INFORMATION
  Report Type: 
  Country: None (occurrence: None)
  Receive Date: 20060703
  Receipt Date: 20060621
  Transmission Date: 20061208
  Serious: Yes (Other)
  Sender: FDA-Public Use
  Company Number: 2006061789

PATIENT
  Age: 73 Year
  Sex: Female
  Weight: 53.5244 kg

DRUGS (7)
  1. LIPITOR [Suspect]
     Indication: DYSLIPIDAEMIA
     Dosage: 10 MG (10 MG, 1 IN 1 D), ORAL
     Route: 048
     Dates: start: 20041228, end: 20060602
  2. PHENOBARBITAL TAB [Concomitant]
  3. ALL OTHER THERAPEUTIC PRODUCTS (ALL OTHER THERAPEUTIC PRODUCTS) [Concomitant]
  4. IMDUR [Concomitant]
  5. ATENOLOL [Concomitant]
  6. WARFARIN SODIUM [Concomitant]
  7. LEVOTHYROXINE SODIUM [Concomitant]

REACTIONS (4)
  - HEADACHE [None]
  - HYPOAESTHESIA ORAL [None]
  - MIDDLE INSOMNIA [None]
  - SWOLLEN TONGUE [None]
